FAERS Safety Report 7179471-6 (Version None)
Quarter: 2010Q4

REPORT INFORMATION
  Report Type: 
  Country: None (occurrence: None)
  Receive Date: 20101208
  Receipt Date: 20101123
  Transmission Date: 20110411
  Serious: Yes (Life-Threatening, Hospitalization)
  Sender: FDA-Public Use
  Company Number: 54973

PATIENT
  Age: 5 Month
  Sex: Female
  Weight: 6.804 kg

DRUGS (1)
  1. HYLAND'S TEETHING TABLETS [Suspect]
     Indication: TEETHING
     Dosage: 2 TABS 2-3 HRS X 3 DAYS

REACTIONS (5)
  - CYANOSIS [None]
  - OXYGEN SATURATION DECREASED [None]
  - RASH [None]
  - SKIN DISCOLOURATION [None]
  - UNDERDOSE [None]
